FAERS Safety Report 5463279-3 (Version None)
Quarter: 2007Q3

REPORT INFORMATION
  Report Type: 
  Country: None (occurrence: None)
  Receive Date: 20070920
  Receipt Date: 20070918
  Transmission Date: 20080115
  Serious: Yes (Hospitalization, Other)
  Sender: FDA-Public Use
  Company Number: CH-BRISTOL-MYERS SQUIBB COMPANY-13431721

PATIENT
  Sex: Female

DRUGS (1)
  1. KENACORT-A INJ 40 MG/ML [Suspect]
     Route: 030
     Dates: start: 20060526, end: 20060526

REACTIONS (3)
  - NORMAL NEWBORN [None]
  - PLACENTAL CHORIOANGIOMA [None]
  - PREGNANCY [None]
